FAERS Safety Report 17101990 (Version 2)
Quarter: 2020Q1

REPORT INFORMATION
  Report Type: Spontaneous
  Country: IT (occurrence: IT)
  Receive Date: 20191202
  Receipt Date: 20200106
  Transmission Date: 20200409
  Serious: Yes (Other)
  Sender: FDA-Public Use
  Company Number: IT-TEVA-2019-IT-1146517

PATIENT
  Age: 72 Year
  Sex: Male

DRUGS (6)
  1. OXYCODONE NALOXONE [Concomitant]
     Indication: CANCER PAIN
     Route: 065
  2. PREGABALIN. [Concomitant]
     Active Substance: PREGABALIN
     Indication: CANCER PAIN
     Route: 065
  3. OXALIPLATIN INJECTION 50MG/10 ML+100MG/20ML [Suspect]
     Active Substance: OXALIPLATIN
     Indication: NEUROENDOCRINE CARCINOMA METASTATIC
     Dosage: ON DAYS 8 AND 22
     Route: 050
  4. FLUOROURACIL. [Suspect]
     Active Substance: FLUOROURACIL
     Indication: NEUROENDOCRINE CARCINOMA METASTATIC
     Dosage: ON DAY 1-2, 8-9, 15-16, 22-23
     Route: 050
  5. IRINOTECAN [Suspect]
     Active Substance: IRINOTECAN
     Indication: NEUROENDOCRINE CARCINOMA METASTATIC
     Dosage: ON DAYS 1 AND 15
     Route: 050
  6. BEVACIZUMAB. [Suspect]
     Active Substance: BEVACIZUMAB
     Indication: NEUROENDOCRINE CARCINOMA METASTATIC
     Dosage: ON DAYS 1 AND 15
     Route: 050

REACTIONS (8)
  - Epistaxis [Unknown]
  - Neurotoxicity [Unknown]
  - Neutropenia [Unknown]
  - Asthenia [Unknown]
  - Alopecia [Unknown]
  - Nausea [Unknown]
  - Rhinitis [Unknown]
  - Diarrhoea [Unknown]
